FAERS Safety Report 4519825-7 (Version None)
Quarter: 2004Q4

REPORT INFORMATION
  Report Type: 
  Country: None (occurrence: None)
  Receive Date: 20041201
  Receipt Date: 20041201
  Transmission Date: 20050328
  Serious: No
  Sender: FDA-Public Use
  Company Number: None

PATIENT
  Age: 38 Year
  Sex: Male
  Weight: 127.2 kg

DRUGS (6)
  1. WARFARIN SODIUM [Suspect]
     Indication: DEEP VEIN THROMBOSIS
     Dosage: VARIOUS, VARIOUS, ORAL
     Route: 048
  2. VENLAFAXINE HCL [Concomitant]
  3. METFORMIN HCL [Concomitant]
  4. GLYBURIDE [Concomitant]
  5. SIMVASTATIN [Concomitant]
  6. VITAMIN B COMPLEX/VITAMIN C [Concomitant]

REACTIONS (1)
  - DRUG LEVEL INCREASED [None]
